FAERS Safety Report 5920419-7 (Version None)
Quarter: 2008Q4

REPORT INFORMATION
  Report Type: 
  Country: None (occurrence: None)
  Receive Date: 20081014
  Receipt Date: 20080929
  Transmission Date: 20090506
  Serious: Yes (Other)
  Sender: FDA-Public Use
  Company Number: 2008S1017537

PATIENT
  Age: 53 Year
  Sex: Female

DRUGS (3)
  1. ENDEP [Suspect]
     Indication: INSOMNIA
     Dosage: 50 MG;AT BEDTIME; ORAL
     Route: 048
     Dates: start: 19900101, end: 20080601
  2. ENDEP [Suspect]
     Indication: TENSION HEADACHE
     Dosage: 50 MG;AT BEDTIME; ORAL
     Route: 048
     Dates: start: 19900101, end: 20080601
  3. OROXINE [Concomitant]

REACTIONS (1)
  - OPEN ANGLE GLAUCOMA [None]
